FAERS Safety Report 7687775-3 (Version None)
Quarter: 2011Q3

REPORT INFORMATION
  Report Type: 
  Country: None (occurrence: None)
  Receive Date: 20110817
  Receipt Date: 20110811
  Transmission Date: 20111222
  Serious: Yes (Hospitalization)
  Sender: FDA-Public Use
  Company Number: FR-US-EMD SERONO, INC.-7075503

PATIENT
  Sex: Male
  Weight: 59 kg

DRUGS (13)
  1. ACETAMINOPHEN [Concomitant]
     Indication: PRODUCT USED FOR UNKNOWN INDICATION
  2. VALIUM [Concomitant]
     Indication: PRODUCT USED FOR UNKNOWN INDICATION
  3. NEURONTIN [Concomitant]
     Indication: PRODUCT USED FOR UNKNOWN INDICATION
  4. CLONAZEPAM [Concomitant]
     Indication: PRODUCT USED FOR UNKNOWN INDICATION
  5. SMECTA [Concomitant]
     Indication: PRODUCT USED FOR UNKNOWN INDICATION
  6. RHINOFLUIMUCIL [Concomitant]
     Indication: PRODUCT USED FOR UNKNOWN INDICATION
  7. POTASSIUM CHLORIDE [Concomitant]
     Indication: PRODUCT USED FOR UNKNOWN INDICATION
  8. MOVIPREP [Concomitant]
     Indication: PRODUCT USED FOR UNKNOWN INDICATION
  9. REBIF [Suspect]
     Dosage: 3X44MCG
     Route: 058
     Dates: start: 20110803, end: 20110803
  10. ALFUZOSIN HCL [Concomitant]
     Indication: PRODUCT USED FOR UNKNOWN INDICATION
  11. REBIF [Suspect]
     Indication: MULTIPLE SCLEROSIS
     Route: 058
     Dates: start: 20020101
  12. LIORESAL [Concomitant]
     Indication: PRODUCT USED FOR UNKNOWN INDICATION
  13. AMANTADINE HCL [Concomitant]
     Indication: PRODUCT USED FOR UNKNOWN INDICATION

REACTIONS (4)
  - PYREXIA [None]
  - INJECTION SITE INFLAMMATION [None]
  - ACCIDENTAL OVERDOSE [None]
  - URINARY TRACT INFECTION [None]
